FAERS Safety Report 7628531-1 (Version None)
Quarter: 2011Q4

REPORT INFORMATION
  Report Type: 
  Country: None (occurrence: None)
  Receive Date: 20110705
  Receipt Date: 20100616
  Transmission Date: 20120403
  Serious: Yes (Other)
  Sender: FDA-Public Use
  Company Number: QR40361-01

PATIENT
  Age: 64 Year
  Sex: Male
  Weight: 82.8 kg

DRUGS (7)
  1. ASPIRIN [Concomitant]
  2. SIMVASTATIN [Concomitant]
  3. BISOPROLOL FUMARATE [Concomitant]
  4. OMEPRAZOLE (LOSEC) [Concomitant]
  5. METFORMIN HCL [Concomitant]
  6. GAMMAPLEX [Suspect]
     Indication: MULTIFOCAL MOTOR NEUROPATHY
     Dosage: 30G
     Dates: start: 20100608
  7. GLIMEPIRIDE [Concomitant]

REACTIONS (4)
  - HEADACHE [None]
  - FEELING ABNORMAL [None]
  - BALANCE DISORDER [None]
  - DIZZINESS [None]
